FAERS Safety Report 8860919 (Version 1)
Quarter: 2012Q4

REPORT INFORMATION
  Report Type: 
  Country: US (occurrence: US)
  Receive Date: 20121025
  Receipt Date: 20121025
  Transmission Date: 20130627
  Serious: Yes (Other)
  Sender: FDA-Public Use
  Company Number: CHPA2012US022162

PATIENT
  Age: 47 Year
  Sex: Female

DRUGS (4)
  1. EXCEDRIN EXTRA STRENGTH [Suspect]
     Indication: MIGRAINE
     Dosage: 4 pills per day as needed
     Route: 048
  2. EXCEDRIN MIGRAINE [Suspect]
     Indication: MIGRAINE
     Dosage: Unk, Unk
     Route: 048
  3. EXCEDRIN TENSION HEADACHE [Suspect]
     Indication: MIGRAINE
     Dosage: Unk, Unk
     Route: 048
  4. COPPER [Suspect]
     Indication: WEIGHT DECREASED

REACTIONS (11)
  - Splenic rupture [Recovered/Resolved]
  - Intracranial aneurysm [Not Recovered/Not Resolved]
  - Abasia [Not Recovered/Not Resolved]
  - Impaired driving ability [Not Recovered/Not Resolved]
  - Neuropathy peripheral [Recovered/Resolved]
  - Lower limb fracture [Recovered/Resolved]
  - Gastric ulcer [Recovered/Resolved]
  - Fall [Recovered/Resolved]
  - Hypoaesthesia [Not Recovered/Not Resolved]
  - Weight decreased [Recovered/Resolved]
  - Vomiting [Not Recovered/Not Resolved]
